FAERS Safety Report 6929571-8 (Version None)
Quarter: 2010Q3

REPORT INFORMATION
  Report Type: 
  Country: None (occurrence: None)
  Receive Date: 20100813
  Receipt Date: 20100802
  Transmission Date: 20110219
  Serious: Yes (Other)
  Sender: FDA-Public Use
  Company Number: 2010097571

PATIENT
  Sex: Female
  Weight: 83.9 kg

DRUGS (5)
  1. FRAGMIN [Suspect]
     Indication: BREAST CANCER
     Dates: start: 20100101
  2. FRAGMIN [Suspect]
     Indication: COAGULOPATHY
     Dates: start: 20100101
  3. TAXOL [Suspect]
     Indication: BREAST CANCER
     Dates: start: 20100101, end: 20100701
  4. BENADRYL [Concomitant]
  5. AVASTIN [Concomitant]

REACTIONS (8)
  - ABASIA [None]
  - ALOPECIA [None]
  - CONTUSION [None]
  - HYPERTENSION [None]
  - LACRIMATION INCREASED [None]
  - ONYCHOMADESIS [None]
  - PAIN IN EXTREMITY [None]
  - PARAESTHESIA [None]
